FAERS Safety Report 12623445 (Version 1)
Quarter: 2016Q3

REPORT INFORMATION
  Report Type: Spontaneous
  Country: US (occurrence: US)
  Receive Date: 20160804
  Receipt Date: 20160804
  Transmission Date: 20161109
  Serious: No
  Sender: FDA-Public Use
  Company Number: US-009507513-1608USA001198

PATIENT
  Age: 27 Year
  Sex: Female
  Weight: 103.4 kg

DRUGS (1)
  1. NEXPLANON [Suspect]
     Active Substance: ETONOGESTREL
     Indication: CONTRACEPTION
     Dosage: IMPLANT IN LEFT ARM
     Route: 059
     Dates: start: 20141103

REACTIONS (6)
  - Menstrual disorder [Unknown]
  - Nausea [Unknown]
  - Back pain [Unknown]
  - Menstruation delayed [Unknown]
  - Food craving [Unknown]
  - Vomiting [Unknown]

NARRATIVE: CASE EVENT DATE: 201607
